FAERS Safety Report 7436583-7 (Version None)
Quarter: 2011Q2

REPORT INFORMATION
  Report Type: 
  Country: None (occurrence: None)
  Receive Date: 20110426
  Receipt Date: 20110412
  Transmission Date: 20111010
  Serious: Yes (Other)
  Sender: FDA-Public Use
  Company Number: GB-RANBAXY-2011R1-43761

PATIENT
  Age: 61 Year
  Sex: Female

DRUGS (6)
  1. CLARITHROMYCIN [Suspect]
     Indication: SECRETION DISCHARGE
  2. FLUCONAZOLE [Concomitant]
     Indication: PELVIC PAIN
     Dosage: 50 MG, QD
     Route: 048
     Dates: start: 20110203, end: 20110210
  3. CLARITHROMYCIN [Suspect]
     Indication: PELVIC PAIN
     Dosage: 250 MG, BID
     Route: 048
     Dates: start: 20110211, end: 20110212
  4. FLUCONAZOLE [Concomitant]
     Indication: SECRETION DISCHARGE
  5. METRONIDAZOLE [Concomitant]
     Indication: SECRETION DISCHARGE
  6. METRONIDAZOLE [Concomitant]
     Indication: PELVIC PAIN
     Dosage: 400 MG, TID
     Route: 048
     Dates: start: 20110203, end: 20110205

REACTIONS (6)
  - THROAT IRRITATION [None]
  - HIATUS HERNIA [None]
  - WRONG TECHNIQUE IN DRUG USAGE PROCESS [None]
  - CONDITION AGGRAVATED [None]
  - HEART RATE INCREASED [None]
  - OESOPHAGEAL PAIN [None]
